FAERS Safety Report 8709110 (Version 2)
Quarter: 2013Q4

REPORT INFORMATION
  Report Type: Spontaneous
  Country: CH (occurrence: CH)
  Receive Date: 20120806
  Receipt Date: 20131106
  Transmission Date: 20140711
  Serious: Yes (Hospitalization)
  Sender: FDA-Public Use
  Company Number: CH-009507513-1207CHE010545

PATIENT
  Age: 75 Year
  Sex: Female
  Weight: 90 kg

DRUGS (4)
  1. TIMOPTIC 0.25% [Suspect]
     Dosage: 1 DF, BID
     Route: 047
     Dates: start: 201203
  2. BELOC-ZOK [Suspect]
     Indication: HYPERTENSION
     Dosage: 100 MG, ONCE
     Route: 048
  3. HYDROCHLOROTHIAZIDE [Suspect]
     Indication: HYPERTENSION
     Dosage: 12.5 MG, QD
     Route: 048
  4. LISINOPRIL [Concomitant]
     Dosage: 20 MG, ONCE
     Route: 048

REACTIONS (12)
  - Prerenal failure [Recovered/Resolved]
  - Drug administration error [Recovered/Resolved]
  - Feeling hot [Recovered/Resolved]
  - Malaise [Recovered/Resolved]
  - Type 2 diabetes mellitus [Unknown]
  - Atrioventricular block complete [Recovered/Resolved]
  - Oedema peripheral [Unknown]
  - Exercise tolerance decreased [Unknown]
  - Head discomfort [Unknown]
  - Hypertension [Unknown]
  - Bradycardia [Unknown]
  - Venous insufficiency [Unknown]
